FAERS Safety Report 9792759 (Version 1)
Quarter: 2014Q1

REPORT INFORMATION
  Report Type: Spontaneous
  Country: US (occurrence: US)
  Receive Date: 20140102
  Receipt Date: 20140102
  Transmission Date: 20141002
  Serious: No
  Sender: FDA-Public Use
  Company Number: US-SA-2013SA110781

PATIENT
  Age: 68 Year
  Sex: Male

DRUGS (7)
  1. AUBAGIO [Suspect]
     Indication: MULTIPLE SCLEROSIS
     Route: 048
     Dates: start: 20130925, end: 20130927
  2. AUBAGIO [Suspect]
     Indication: MULTIPLE SCLEROSIS
     Route: 048
     Dates: start: 20131002
  3. SYNTHROID [Concomitant]
     Indication: HYPOTHYROIDISM
     Dosage: START: OVER 20 YEARS
  4. FINASTERIDE [Concomitant]
     Indication: PROSTATIC DISORDER
  5. PANTOPRAZOLE [Concomitant]
     Indication: GASTROOESOPHAGEAL REFLUX DISEASE
  6. LATANOPROST [Concomitant]
     Indication: GLAUCOMA
     Dosage: START: 5 YEARS
     Route: 047
  7. ECOTRIN [Concomitant]
     Indication: PROPHYLAXIS
     Dosage: START: 15 YEARS

REACTIONS (3)
  - Vertigo [Recovered/Resolved]
  - Dizziness [Unknown]
  - Drug dose omission [Unknown]
